FAERS Safety Report 8955967 (Version 1)
Quarter: 2012Q4

REPORT INFORMATION
  Report Type: Report from Study
  Country: FR (occurrence: FR)
  Receive Date: 20121210
  Receipt Date: 20121210
  Transmission Date: 20130627
  Serious: Yes (Death, Hospitalization)
  Sender: FDA-Public Use
  Company Number: FR-ELI_LILLY_AND_COMPANY-FR201212000642

PATIENT
  Age: 61 Year
  Sex: Male
  Weight: 90 kg

DRUGS (4)
  1. GEMCITABINE HYDROCHLORIDE [Suspect]
     Indication: NON-SMALL CELL LUNG CANCER
     Dosage: 1250 mg/ml, 1 in 3 wk, on day 1 and day 8
     Route: 042
     Dates: start: 20070807
  2. CISPLATIN [Suspect]
     Indication: NON-SMALL CELL LUNG CANCER
     Dosage: 75 mg/m2, 1 in 3 wk
     Route: 042
     Dates: start: 20070807
  3. BEVACIZUMAB [Suspect]
     Indication: NON-SMALL CELL LUNG CANCER
     Dosage: 15 mg/kg, 1 in 3 wk
     Route: 042
     Dates: start: 20070807
  4. STILNOX [Concomitant]
     Dosage: 10 mg, unknown
     Dates: start: 20070917, end: 20071102

REACTIONS (1)
  - Infection [Fatal]
